FAERS Safety Report 21462645 (Version 3)
Quarter: 2023Q4

REPORT INFORMATION
  Report Type: Spontaneous
  Country: US (occurrence: None)
  Receive Date: 20221017
  Receipt Date: 20231002
  Transmission Date: 20240109
  Serious: No
  Sender: FDA-Public Use
  Company Number: 2022A344840

PATIENT
  Age: 21349 Day
  Sex: Female
  Weight: 86.1 kg

DRUGS (1)
  1. BYDUREON BCISE [Suspect]
     Active Substance: EXENATIDE
     Indication: Type 2 diabetes mellitus
     Route: 058
     Dates: start: 20191120

REACTIONS (5)
  - Injection site haemorrhage [Unknown]
  - Device delivery system issue [Recovered/Resolved]
  - Incorrect dose administered by device [Recovered/Resolved]
  - Incorrect dose administered [Unknown]
  - Wrong technique in device usage process [Unknown]

NARRATIVE: CASE EVENT DATE: 20221006
